FAERS Safety Report 4901183-7 (Version None)
Quarter: 2006Q1

REPORT INFORMATION
  Report Type: 
  Country: None (occurrence: None)
  Receive Date: 20060201
  Receipt Date: 20060116
  Transmission Date: 20060701
  Serious: Yes (Hospitalization)
  Sender: FDA-Public Use
  Company Number: DE200601002532

PATIENT
  Sex: Female

DRUGS (1)
  1. YENTREVE [Suspect]
     Dosage: ORAL
     Route: 048

REACTIONS (2)
  - HEPATOCELLULAR DAMAGE [None]
  - HEPATOTOXICITY [None]
